FAERS Safety Report 10373769 (Version 1)
Quarter: 2014Q1

REPORT INFORMATION
  Report Type: Spontaneous
  Country: US (occurrence: None)
  Receive Date: 20140306
  Receipt Date: 20140306
  Transmission Date: 20141002
  Serious: Yes (Hospitalization)
  Sender: FDA-Public Use
  Company Number: 163-21880-13105334

PATIENT
  Age: 85 Year
  Sex: Female

DRUGS (9)
  1. REVLIMID (LENALIDOMIDE) (5 MILLIGRAM, CAPSULES) [Suspect]
     Indication: MYELODYSPLASTIC SYNDROME
     Dosage: 02-OCT-2013 - TEMPORARILY INTERRUPTED
     Route: 048
     Dates: start: 20131002
  2. ACYCLOVIR (ACICLOVIR) (ACICLOVIR) [Concomitant]
  3. BYSTOLIC (NEBIVOLOL HYDROCHLORIDE) [Concomitant]
  4. LASIX (FUROSEMIDE) [Concomitant]
  5. NITROGLYCERIN (CLYCERYL TRINITRATE) [Concomitant]
  6. MEPRON (ATOVAQUONE) [Concomitant]
  7. XALATAN (LATANOPROST) [Concomitant]
  8. XANAX (ALPRAZOLAM) [Concomitant]
  9. ZAROXOLYN (METOLAZONE) [Concomitant]

REACTIONS (1)
  - Cardiac failure congestive [None]
